FAERS Safety Report 4634599-7 (Version None)
Quarter: 2005Q2

REPORT INFORMATION
  Report Type: 
  Country: None (occurrence: None)
  Receive Date: 20050413
  Receipt Date: 20050330
  Transmission Date: 20051028
  Serious: Yes (Life-Threatening, Hospitalization)
  Sender: FDA-Public Use
  Company Number: 2005052444

PATIENT
  Age: 82 Year
  Sex: Female

DRUGS (7)
  1. CELECOXIB (CELECOXIB) [Suspect]
     Indication: ARTHRITIS
     Dosage: 200 MG (100 MG, 2 IN 1 D), ORAL
     Route: 048
     Dates: end: 20050118
  2. ACETYLSALICYLIC ACID SRT [Suspect]
     Indication: ANGINA PECTORIS
     Dosage: 150 MG (150 MG, 1 IN D), ORAL
     Route: 048
  3. DICLOFENAC SODIUM [Suspect]
     Indication: ARTHRITIS
     Dosage: 75 MG(25 MG, 3 IN 1 D), ORAL
     Route: 048
     Dates: start: 20050211, end: 20050218
  4. ATENOLOL [Concomitant]
  5. FUROSEMDIE (FUROSEMIDE) [Concomitant]
  6. LEVOTHYROXINE SODIUM [Concomitant]
  7. ZOLPICLONE (ZOLPICLONE) [Concomitant]

REACTIONS (2)
  - DUODENAL ULCER [None]
  - UPPER GASTROINTESTINAL HAEMORRHAGE [None]
